FAERS Safety Report 4497931-3 (Version None)
Quarter: 2004Q4

REPORT INFORMATION
  Report Type: 
  Country: None (occurrence: None)
  Receive Date: 20041104
  Receipt Date: 20041028
  Transmission Date: 20050328
  Serious: Yes (Life-Threatening, Hospitalization)
  Sender: FDA-Public Use
  Company Number: 2004CG01849

PATIENT
  Age: 63 Year
  Sex: Male
  Weight: 73 kg

DRUGS (5)
  1. NEXIUM [Suspect]
     Indication: GASTROOESOPHAGEAL REFLUX DISEASE
     Dates: start: 20040401, end: 20040501
  2. NEXIUM [Suspect]
     Indication: HELICOBACTER INFECTION
     Dates: start: 20040401, end: 20040501
  3. DAFLON [Concomitant]
  4. XANAX [Concomitant]
  5. FENOFIBRATE [Concomitant]

REACTIONS (5)
  - GINGIVAL BLEEDING [None]
  - MOUTH HAEMORRHAGE [None]
  - ORAL MUCOSAL BLISTERING [None]
  - SPINAL MYELOGRAM ABNORMAL [None]
  - THROMBOCYTOPENIC PURPURA [None]
